FAERS Safety Report 25487892 (Version 3)
Quarter: 2025Q4

REPORT INFORMATION
  Report Type: Spontaneous
  Country: JP (occurrence: JP)
  Receive Date: 20250627
  Receipt Date: 20251031
  Transmission Date: 20260118
  Serious: Yes (Hospitalization, Other)
  Sender: MERCK SHARP & DOHME LLC
  Company Number: JP-009507513-2298466

PATIENT
  Age: 81 Year
  Sex: Female

DRUGS (1)
  1. KEYTRUDA [Suspect]
     Active Substance: PEMBROLIZUMAB
     Indication: Tongue neoplasm malignant stage unspecified
     Dosage: TIME INTERVAL: CYCLICAL
     Route: 065

REACTIONS (6)
  - Immune-mediated mucositis [Recovering/Resolving]
  - Immune-mediated dermatitis [Unknown]
  - Diarrhoea [Unknown]
  - Immune-mediated enterocolitis [Unknown]
  - Inappropriate schedule of product administration [Unknown]
  - Oral candidiasis [Recovering/Resolving]
